FAERS Safety Report 11427232 (Version 4)
Quarter: 2020Q4

REPORT INFORMATION
  Report Type: Report from Study
  Country: US (occurrence: US)
  Receive Date: 20150827
  Receipt Date: 20201203
  Transmission Date: 20210113
  Serious: Yes (Other)
  Sender: FDA-Public Use
  Company Number: US-SA-2014SA109088

PATIENT
  Age: 46 Year
  Sex: Female
  Weight: 83.9 kg

DRUGS (33)
  1. STERILE WATER [Concomitant]
     Active Substance: WATER
  2. PRILOSEC [Concomitant]
     Active Substance: OMEPRAZOLE MAGNESIUM
  3. TRAZODONE [Concomitant]
     Active Substance: TRAZODONE HYDROCHLORIDE
  4. HYDROCORTISONE. [Concomitant]
     Active Substance: HYDROCORTISONE
  5. MECLIZINE [Concomitant]
     Active Substance: MECLIZINE HYDROCHLORIDE
  6. CALCIUM 600 WITH VITAMIN D3 [Concomitant]
     Active Substance: CALCIUM CARBONATE\VITAMIN D
  7. MIRALAX [Concomitant]
     Active Substance: POLYETHYLENE GLYCOL 3350
  8. SOLU-MEDROL [Concomitant]
     Active Substance: METHYLPREDNISOLONE SODIUM SUCCINATE
     Dosage: UNK
     Dates: start: 20061010
  9. GABAPENTIN. [Concomitant]
     Active Substance: GABAPENTIN
  10. SIMVASTATIN. [Concomitant]
     Active Substance: SIMVASTATIN
  11. AZELASTINE. [Concomitant]
     Active Substance: AZELASTINE HYDROCHLORIDE
  12. SOLU-CORTEF [Concomitant]
     Active Substance: HYDROCORTISONE SODIUM SUCCINATE
  13. AMITRIPTYLINE [Concomitant]
     Active Substance: AMITRIPTYLINE
  14. WELLBUTRIN [Concomitant]
     Active Substance: BUPROPION HYDROCHLORIDE
  15. ACETAMINOPHEN. [Concomitant]
     Active Substance: ACETAMINOPHEN
  16. NORMAL SALINE [Concomitant]
     Active Substance: SODIUM CHLORIDE
  17. DYAZIDE [Concomitant]
     Active Substance: HYDROCHLOROTHIAZIDE\TRIAMTERENE
  18. ARTIFICIAL TEARS [PROPYLENE GLYCOL] [Concomitant]
  19. HEPARIN [Concomitant]
     Active Substance: HEPARIN SODIUM
  20. TRAMADOL. [Concomitant]
     Active Substance: TRAMADOL
  21. ALBUTEROL [SALBUTAMOL] [Concomitant]
     Active Substance: ALBUTEROL
  22. EPINEPHRINE. [Concomitant]
     Active Substance: EPINEPHRINE
  23. CYMBALTA [Concomitant]
     Active Substance: DULOXETINE HYDROCHLORIDE
  24. MULTIVITAMINS [VITAMINS NOS] [Concomitant]
     Active Substance: VITAMINS
  25. AGALSIDASE BETA [Suspect]
     Active Substance: AGALSIDASE BETA
     Indication: FABRY^S DISEASE
     Dosage: 1 MG/KG,QOW
     Route: 041
     Dates: start: 20061010
  26. LORATADINE. [Concomitant]
     Active Substance: LORATADINE
  27. CYTOMEL [Concomitant]
     Active Substance: LIOTHYRONINE SODIUM
  28. FLONASE [MOMETASONE FUROATE] [Concomitant]
     Active Substance: MOMETASONE FUROATE
  29. AGALSIDASE BETA [Suspect]
     Active Substance: AGALSIDASE BETA
     Dosage: 80 MG (35MG VIAL, 5 MG VIAL)
     Route: 042
     Dates: start: 20160212
  30. DIPHENHYDRAMINE HYDROCHLORIDE. [Suspect]
     Active Substance: DIPHENHYDRAMINE HYDROCHLORIDE
     Dosage: UNK UNK,UNK
     Route: 065
  31. ONDANSETRON [Concomitant]
     Active Substance: ONDANSETRON
  32. FLUBLOK [Concomitant]
     Active Substance: INFLUENZA A VIRUS A/CALIFORNIA/7/2009 (H1N1) RECOMBINANT HEMAGGLUTININ ANTIGEN\INFLUENZA A VIRUS A/VICTORIA/361/2011 (H3N2) RECOMBINANT HEMAGGLUTININ ANTIGEN\INFLUENZA B VIRUS B/WISCONSIN/1/2010 RECOMBINANT HEMAGGLUTININ ANTIGEN
  33. ASPIRIN [ACETYLSALICYLIC ACID] [Concomitant]
     Active Substance: ASPIRIN

REACTIONS (17)
  - Vulval disorder [Unknown]
  - Pineal gland cyst [Unknown]
  - Skin haemorrhage [Unknown]
  - Fibromyalgia [Unknown]
  - Sleep apnoea syndrome [Not Recovered/Not Resolved]
  - Erythema [Unknown]
  - Pain [Unknown]
  - Burning sensation [Unknown]
  - Hypersomnia [Not Recovered/Not Resolved]
  - Fall [Unknown]
  - Hydrocephalus [Unknown]
  - Hyperhidrosis [Recovered/Resolved]
  - Skin lesion [Unknown]
  - Joint swelling [Unknown]
  - Fatigue [Not Recovered/Not Resolved]
  - Headache [Recovering/Resolving]
  - Gastrooesophageal reflux disease [Unknown]

NARRATIVE: CASE EVENT DATE: 20061010
